FAERS Safety Report 8114511-9 (Version None)
Quarter: 2012Q1

REPORT INFORMATION
  Report Type: 
  Country: None (occurrence: None)
  Receive Date: 20120206
  Receipt Date: 20120202
  Transmission Date: 20120608
  Serious: No
  Sender: FDA-Public Use
  Company Number: US-PFIZER INC-2012028551

PATIENT
  Sex: Female
  Weight: 71.655 kg

DRUGS (4)
  1. SOMA [Concomitant]
     Dosage: UNK
  2. FLECTOR [Suspect]
     Indication: JOINT SWELLING
     Dosage: UNK, AS NEEDED
     Dates: start: 20120201, end: 20120201
  3. FLECTOR [Suspect]
     Indication: ARTHRITIS
  4. NORCO [Concomitant]
     Dosage: UNK

REACTIONS (2)
  - NAUSEA [None]
  - DIZZINESS [None]
